FAERS Safety Report 12805772 (Version 1)
Quarter: 2016Q4

REPORT INFORMATION
  Report Type: Spontaneous
  Country: US (occurrence: US)
  Receive Date: 20161003
  Receipt Date: 20161003
  Transmission Date: 20170207
  Serious: Yes (Other)
  Sender: FDA-Public Use
  Company Number: None

PATIENT
  Sex: Female

DRUGS (1)
  1. SPIRONOLACTON AMNEAL [Suspect]
     Active Substance: SPIRONOLACTONE

REACTIONS (2)
  - Drug ineffective [None]
  - Product substitution issue [None]
